FAERS Safety Report 19474805 (Version 1)
Quarter: 2021Q2

REPORT INFORMATION
  Report Type: Spontaneous
  Country: US (occurrence: US)
  Receive Date: 20210629
  Receipt Date: 20210629
  Transmission Date: 20210717
  Serious: No
  Sender: FDA-Public Use
  Company Number: US-SA-2021SA210772

PATIENT
  Age: 67 Year
  Sex: Female

DRUGS (1)
  1. DUPIXENT [Suspect]
     Active Substance: DUPILUMAB
     Indication: ECZEMA
     Dosage: 300MG, QM
     Route: 065
     Dates: start: 202101

REACTIONS (2)
  - Eczema [Unknown]
  - Product use issue [Unknown]

NARRATIVE: CASE EVENT DATE: 202101
